FAERS Safety Report 4489632-2 (Version None)
Quarter: 2004Q4

REPORT INFORMATION
  Report Type: 
  Country: None (occurrence: None)
  Receive Date: 20041026
  Receipt Date: 20041021
  Transmission Date: 20050328
  Serious: Yes (Hospitalization)
  Sender: FDA-Public Use
  Company Number: LTI2004A00235

PATIENT
  Age: 50 Year
  Sex: Female

DRUGS (4)
  1. LANSOPRAZOLE [Suspect]
     Dosage: 30 MG (30 MG, 1 IN 1 D) ORAL
     Route: 048
     Dates: start: 20040625
  2. DI-HYDAN (PHENYTOIN) (TABLETS) [Suspect]
     Indication: EPILEPSY
     Dosage: 300 MG ORAL
     Route: 048
     Dates: start: 19980101, end: 20040729
  3. PRAXINOR (AKRINOR) (TABLETS) [Concomitant]
  4. FENOFIBRATE               (FENOFIBRATE) (CAPSULES) [Concomitant]

REACTIONS (6)
  - DRUG INTERACTION [None]
  - DRUG TOXICITY [None]
  - DYSKINESIA [None]
  - NYSTAGMUS [None]
  - SOMNOLENCE [None]
  - TREMOR [None]
